FAERS Safety Report 5796429-X (Version None)
Quarter: 2008Q3

REPORT INFORMATION
  Report Type: 
  Country: None (occurrence: None)
  Receive Date: 20080701
  Receipt Date: 20080617
  Transmission Date: 20090109
  Serious: Yes (Other)
  Sender: FDA-Public Use
  Company Number: PHHY2008SE11250

PATIENT
  Sex: Female

DRUGS (3)
  1. ZOMETA [Suspect]
     Indication: BREAST CANCER
     Dosage: 4 MG/ 5ML
  2. NAVELBINE [Concomitant]
  3. WARFARIN SODIUM [Concomitant]
     Dosage: 2.5 MG, UNK

REACTIONS (1)
  - OSTEONECROSIS [None]
